FAERS Safety Report 4512132-8 (Version None)
Quarter: 2004Q4

REPORT INFORMATION
  Report Type: 
  Country: None (occurrence: None)
  Receive Date: 20041129
  Receipt Date: 20031201
  Transmission Date: 20050328
  Serious: No
  Sender: FDA-Public Use
  Company Number: US-GLAXOSMITHKLINE-A0441462A

PATIENT
  Age: 79 Year
  Sex: Female

DRUGS (3)
  1. LANOXIN [Suspect]
     Indication: ATRIAL FIBRILLATION
     Dosage: .125MG PER DAY
     Route: 048
  2. ALLOPURINOL [Suspect]
     Route: 065
  3. COLCHICINE [Concomitant]

REACTIONS (1)
  - CARDIOACTIVE DRUG LEVEL DECREASED [None]
